FAERS Safety Report 26067251 (Version 2)
Quarter: 2025Q4

REPORT INFORMATION
  Report Type: Report from Study
  Country: CN (occurrence: CN)
  Receive Date: 20251120
  Receipt Date: 20251126
  Transmission Date: 20260117
  Serious: Yes (Other)
  Sender: JOHNSON AND JOHNSON
  Company Number: CN-JNJFOC-20251160777

PATIENT

DRUGS (10)
  1. DARATUMUMAB [Suspect]
     Active Substance: DARATUMUMAB
     Indication: Plasma cell myeloma
     Dosage: DAYS 1,8
  2. DARATUMUMAB [Suspect]
     Active Substance: DARATUMUMAB
     Dosage: DAYS 1,15
  3. CARFILZOMIB [Suspect]
     Active Substance: CARFILZOMIB
     Indication: Plasma cell myeloma
     Dosage: 20/27 MG/M? DAYS 1,2,8,9,15,16
     Route: 050
  4. LENALIDOMIDE [Suspect]
     Active Substance: LENALIDOMIDE
     Indication: Plasma cell myeloma
     Dosage: DAYS 1-14
     Route: 050
  5. LENALIDOMIDE [Suspect]
     Active Substance: LENALIDOMIDE
     Dosage: DAYS 1-7
     Route: 050
  6. DEXAMETHASONE [Suspect]
     Active Substance: DEXAMETHASONE
     Indication: Plasma cell myeloma
     Dosage: DAYS 1,8,15,22
     Route: 050
  7. CISPLATIN [Suspect]
     Active Substance: CISPLATIN
     Indication: Plasma cell myeloma
     Dosage: DAYS 1-4
     Route: 050
  8. EPIRUBICIN [Suspect]
     Active Substance: EPIRUBICIN
     Indication: Plasma cell myeloma
     Dosage: DAYS 1-4
     Route: 050
  9. CYCLOPHOSPHAMIDE [Suspect]
     Active Substance: CYCLOPHOSPHAMIDE
     Indication: Plasma cell myeloma
     Dosage: DAYS 1-4
     Route: 050
  10. ETOPOSIDE [Suspect]
     Active Substance: ETOPOSIDE
     Indication: Plasma cell myeloma
     Dosage: DAYS 1-4
     Route: 050

REACTIONS (8)
  - Neutropenia [Unknown]
  - Thrombocytopenia [Unknown]
  - Atrial thrombosis [Unknown]
  - Deep vein thrombosis [Unknown]
  - Neuropathy peripheral [Unknown]
  - Anaemia [Unknown]
  - Infection [Unknown]
  - Intentional product use issue [Unknown]
